FAERS Safety Report 5653451-1 (Version None)
Quarter: 2008Q1

REPORT INFORMATION
  Report Type: 
  Country: None (occurrence: None)
  Receive Date: 20080306
  Receipt Date: 20080225
  Transmission Date: 20080703
  Serious: Yes (Life-Threatening, Hospitalization)
  Sender: FDA-Public Use
  Company Number: B0511020A

PATIENT
  Age: 32 Year
  Sex: Female

DRUGS (7)
  1. DEROXAT [Suspect]
     Indication: DRUG USE FOR UNKNOWN INDICATION
     Route: 048
     Dates: start: 20070930, end: 20071001
  2. AUGMENTIN '125' [Suspect]
     Indication: DRUG USE FOR UNKNOWN INDICATION
     Dosage: 1G THREE TIMES PER DAY
     Route: 042
     Dates: start: 20070930, end: 20071001
  3. TERCIAN [Suspect]
     Dosage: 100MG THREE TIMES PER DAY
     Route: 048
     Dates: start: 20070930, end: 20071001
  4. EFFEXOR [Suspect]
     Route: 048
     Dates: start: 20070930, end: 20071001
  5. PERFALGAN [Suspect]
     Dosage: 1G FOUR TIMES PER DAY
     Route: 042
     Dates: start: 20070930
  6. ACUPAN [Suspect]
     Dosage: 6UNIT PER DAY
     Route: 042
     Dates: start: 20070930
  7. NUBAIN [Suspect]
     Dosage: 20MG AS REQUIRED
     Route: 042
     Dates: start: 20070930, end: 20071001

REACTIONS (4)
  - AGITATION [None]
  - CONFUSIONAL STATE [None]
  - RESPIRATORY DISTRESS [None]
  - SOMNOLENCE [None]
